FAERS Safety Report 20787071 (Version 2)
Quarter: 2022Q2

REPORT INFORMATION
  Report Type: Report from Study
  Country: US (occurrence: US)
  Receive Date: 20220505
  Receipt Date: 20220617
  Transmission Date: 20220720
  Serious: Yes (Hospitalization, Other)
  Sender: FDA-Public Use
  Company Number: US-ALLERGAN-2214293US

PATIENT
  Sex: Female

DRUGS (2)
  1. UBROGEPANT [Suspect]
     Active Substance: UBROGEPANT
     Indication: Migraine
     Dosage: 100 MG, ACTUAL: 00 MG ONCE A DAY AS NEEDED AND MAY TAKE ANOTHER AFTER AN HOUR IF NEEDED
  2. KLONOPIN [Suspect]
     Active Substance: CLONAZEPAM
     Indication: Anxiety
     Dosage: 1 MG, PRN

REACTIONS (2)
  - Pulmonary embolism [Recovered/Resolved]
  - Pneumonia [Recovered/Resolved]
